FAERS Safety Report 8885649 (Version 1)
Quarter: 2012Q4

REPORT INFORMATION
  Report Type: 
  Country: MX (occurrence: MX)
  Receive Date: 20121102
  Receipt Date: 20121102
  Transmission Date: 20130627
  Serious: Yes (Death, Other)
  Sender: FDA-Public Use
  Company Number: MX-JNJFOC-20121013899

PATIENT
  Sex: Female

DRUGS (22)
  1. DOXORUBICIN HYDROCHLORIDE (DOXIL) [Suspect]
     Indication: HODGKIN^S DISEASE
     Route: 042
  2. DOXORUBICIN HYDROCHLORIDE (DOXIL) [Suspect]
     Indication: NON-HODGKIN^S LYMPHOMA
     Route: 042
  3. DOXORUBICIN HYDROCHLORIDE (DOXIL) [Suspect]
     Indication: ACUTE LEUKAEMIA
     Route: 042
  4. ADRIAMYCIN [Suspect]
     Indication: HODGKIN^S DISEASE
     Route: 065
  5. ADRIAMYCIN [Suspect]
     Indication: NON-HODGKIN^S LYMPHOMA
     Route: 065
  6. ADRIAMYCIN [Suspect]
     Indication: ACUTE LEUKAEMIA
     Route: 065
  7. CYCLOPHOSPHAMIDE [Suspect]
     Indication: NON-HODGKIN^S LYMPHOMA
     Route: 065
  8. CYCLOPHOSPHAMIDE [Suspect]
     Indication: ACUTE LEUKAEMIA
     Route: 065
  9. VINCRISTINE [Suspect]
     Indication: HODGKIN^S DISEASE
     Route: 065
  10. VINCRISTINE [Suspect]
     Indication: NON-HODGKIN^S LYMPHOMA
     Route: 065
  11. VINCRISTINE [Suspect]
     Indication: ACUTE LEUKAEMIA
     Route: 065
  12. PREDNISONE [Suspect]
     Indication: HODGKIN^S DISEASE
     Route: 065
  13. PREDNISONE [Suspect]
     Indication: NON-HODGKIN^S LYMPHOMA
     Route: 065
  14. PREDNISONE [Suspect]
     Indication: ACUTE LEUKAEMIA
     Route: 065
  15. RITUXIMAB [Suspect]
     Indication: NON-HODGKIN^S LYMPHOMA
     Route: 065
  16. BLEOMYCIN [Suspect]
     Indication: HODGKIN^S DISEASE
     Route: 065
  17. VINBLASTINE [Suspect]
     Indication: HODGKIN^S DISEASE
     Route: 065
  18. DACARBAZINE [Suspect]
     Indication: HODGKIN^S DISEASE
     Route: 065
  19. NITROGEN MUSTARD [Suspect]
     Indication: HODGKIN^S DISEASE
     Route: 065
  20. PROCARBAZINE [Suspect]
     Indication: HODGKIN^S DISEASE
     Route: 065
  21. ARA-C [Suspect]
     Indication: ACUTE LEUKAEMIA
     Route: 065
  22. UNSPECIFIED DRUG [Suspect]
     Indication: ACUTE LEUKAEMIA
     Route: 065

REACTIONS (16)
  - Death [Fatal]
  - Non-Hodgkin^s lymphoma recurrent [Unknown]
  - Exposure during pregnancy [Unknown]
  - Foetal death [Unknown]
  - Abortion spontaneous [Unknown]
  - Granulocytopenia [Unknown]
  - Thrombocytopenia [Unknown]
  - Sepsis [Unknown]
  - Pneumonia [Unknown]
  - Urinary tract infection [Unknown]
  - Off label use [Unknown]
  - Maternal exposure during pregnancy [None]
  - Acute lymphocytic leukaemia recurrent [None]
  - Acute myeloid leukaemia recurrent [None]
  - Haematotoxicity [None]
  - Stillbirth [None]
